FAERS Safety Report 10475473 (Version 1)
Quarter: 2014Q3

REPORT INFORMATION
  Report Type: Spontaneous
  Country: US (occurrence: None)
  Receive Date: 20140924
  Receipt Date: 20140924
  Transmission Date: 20150326
  Serious: Yes (Hospitalization)
  Sender: FDA-Public Use
  Company Number: None

PATIENT
  Age: 59 Year
  Sex: Female
  Weight: 93.2 kg

DRUGS (7)
  1. LISINOPRIL. [Concomitant]
     Active Substance: LISINOPRIL
  2. NAPROSYN [Suspect]
     Active Substance: NAPROXEN
     Indication: HEADACHE
     Dosage: RECENT
     Route: 048
  3. AMARYL [Concomitant]
     Active Substance: GLIMEPIRIDE
  4. LOVASTATIN. [Concomitant]
     Active Substance: LOVASTATIN
  5. VITAMIN D [Concomitant]
     Active Substance: CHOLECALCIFEROL
  6. METFORMIN [Concomitant]
     Active Substance: METFORMIN HYDROCHLORIDE
  7. GARCINA CAMBOGIA [Concomitant]

REACTIONS (3)
  - Dehydration [None]
  - Renal failure acute [None]
  - Renal tubular necrosis [None]

NARRATIVE: CASE EVENT DATE: 20140405
